FAERS Safety Report 10497199 (Version 1)
Quarter: 2014Q4

REPORT INFORMATION
  Report Type: Spontaneous
  Country: CN (occurrence: CN)
  Receive Date: 20141006
  Receipt Date: 20141006
  Transmission Date: 20150528
  Serious: Yes (Other)
  Sender: FDA-Public Use
  Company Number: CN-BAYER-2014-142546

PATIENT
  Sex: Female

DRUGS (1)
  1. NEXAVAR [Suspect]
     Active Substance: SORAFENIB
     Indication: HEPATOCELLULAR CARCINOMA
     Dosage: UNK
     Route: 048
     Dates: start: 20100107, end: 201405

REACTIONS (5)
  - Hepatocellular carcinoma [None]
  - Squamous cell carcinoma [None]
  - Skin haemorrhage [Recovering/Resolving]
  - Glioma [Not Recovered/Not Resolved]
  - Skin fissures [Recovering/Resolving]

NARRATIVE: CASE EVENT DATE: 2010
